FAERS Safety Report 6312567-7 (Version None)
Quarter: 2009Q3

REPORT INFORMATION
  Report Type: 
  Country: None (occurrence: None)
  Receive Date: 20090817
  Receipt Date: 20090615
  Transmission Date: 20100115
  Serious: No
  Sender: FDA-Public Use
  Company Number: US-ALLERGAN-0908263US

PATIENT
  Age: 75 Year
  Sex: Female

DRUGS (4)
  1. SANCTURA XR [Suspect]
     Indication: MICTURITION URGENCY
     Dosage: 60 MG, QAM
     Route: 048
     Dates: start: 20090612
  2. ACCOLATE [Concomitant]
     Indication: HYPERSENSITIVITY
  3. SYNTHROID [Concomitant]
  4. COZAAR [Concomitant]

REACTIONS (1)
  - CONTUSION [None]
